FAERS Safety Report 22528534 (Version 1)
Quarter: 2023Q2

REPORT INFORMATION
  Report Type: Spontaneous
  Country: US (occurrence: US)
  Receive Date: 20230607
  Receipt Date: 20230607
  Transmission Date: 20230722
  Serious: Yes (Hospitalization, Other)
  Sender: FDA-Public Use
  Company Number: US-AMGEN-USASP2023093218

PATIENT
  Age: 4 Year
  Sex: Female

DRUGS (2)
  1. RITUXIMAB [Suspect]
     Active Substance: RITUXIMAB
     Indication: Transplant rejection
     Dosage: UNK
     Route: 065
  2. BORTEZOMIB [Concomitant]
     Active Substance: BORTEZOMIB
     Indication: Transplant rejection

REACTIONS (11)
  - Polyomavirus-associated nephropathy [Unknown]
  - Post transplant lymphoproliferative disorder [Unknown]
  - Hypervolaemia [Unknown]
  - Cardiac failure [Unknown]
  - Multiple organ dysfunction syndrome [Unknown]
  - Abdominal distension [Unknown]
  - Brain natriuretic peptide increased [Unknown]
  - Cardiac arrest [Unknown]
  - Drug effective for unapproved indication [Unknown]
  - Epstein-Barr virus infection [Unknown]
  - Off label use [Unknown]
